FAERS Safety Report 6410194-4 (Version None)
Quarter: 2009Q4

REPORT INFORMATION
  Report Type: 
  Country: None (occurrence: None)
  Receive Date: 20091022
  Receipt Date: 20091012
  Transmission Date: 20100525
  Serious: Yes (Hospitalization)
  Sender: FDA-Public Use
  Company Number: TR-PFIZER INC-2009282959

PATIENT
  Age: 64 Year

DRUGS (4)
  1. SULPERAZON [Suspect]
     Indication: UROSEPSIS
     Dosage: 2 G, 2X/DAY
     Route: 051
     Dates: start: 20090818, end: 20090823
  2. NAPROXEN SODIUM [Concomitant]
     Dosage: UNK
     Route: 048
     Dates: start: 20090818, end: 20090906
  3. PARACETAMOL [Concomitant]
     Dosage: UNK
     Route: 042
     Dates: start: 20090818, end: 20090906
  4. RANITIDINE [Concomitant]
     Dosage: UNK
     Route: 042
     Dates: start: 20090818, end: 20090906

REACTIONS (4)
  - ALANINE AMINOTRANSFERASE INCREASED [None]
  - ASPARTATE AMINOTRANSFERASE INCREASED [None]
  - GAMMA-GLUTAMYLTRANSFERASE INCREASED [None]
  - PULMONARY OEDEMA [None]
